FAERS Safety Report 25459653 (Version 3)
Quarter: 2025Q3

REPORT INFORMATION
  Report Type: Report from Study
  Country: CA (occurrence: CA)
  Receive Date: 20250620
  Receipt Date: 20250828
  Transmission Date: 20251021
  Serious: Yes (Hospitalization, Other)
  Sender: TAKEDA
  Company Number: CA-TAKEDA-2023TUS029328

PATIENT
  Sex: Female

DRUGS (24)
  1. VEDOLIZUMAB [Suspect]
     Active Substance: VEDOLIZUMAB
     Indication: Colitis ulcerative
  2. VEDOLIZUMAB [Suspect]
     Active Substance: VEDOLIZUMAB
  3. VEDOLIZUMAB [Suspect]
     Active Substance: VEDOLIZUMAB
  4. IRON [Concomitant]
     Active Substance: IRON
     Indication: Supplementation therapy
     Dosage: 300 MILLIGRAM, QOD
  5. METFORMIN [Concomitant]
     Active Substance: METFORMIN HYDROCHLORIDE
  6. ADMELOG [Concomitant]
     Active Substance: INSULIN LISPRO
  7. BASAGLAR [Concomitant]
     Active Substance: INSULIN GLARGINE
  8. BACLOFEN [Concomitant]
     Active Substance: BACLOFEN
  9. DIAZEPAM [Concomitant]
     Active Substance: DIAZEPAM
     Dosage: 10 MILLIGRAM, Q6WEEKS
  10. GABAPENTIN [Concomitant]
     Active Substance: GABAPENTIN
  11. HYDROMORPHONE [Concomitant]
     Active Substance: HYDROMORPHONE
     Dosage: 3 MILLIGRAM, Q4WEEKS
  12. INSULIN NOS [Concomitant]
     Active Substance: INSULIN NOS
  13. LEVETIRACETAM [Concomitant]
     Active Substance: LEVETIRACETAM
     Dosage: 2000 MILLIGRAM, BID
  14. PHENYTOIN [Concomitant]
     Active Substance: PHENYTOIN
  15. PROPOFOL [Concomitant]
     Active Substance: PROPOFOL
  16. THIAMINE [Concomitant]
     Active Substance: THIAMINE
     Dosage: 100 MILLIGRAM, QD
  17. TINZAPARIN [Concomitant]
     Active Substance: TINZAPARIN
     Dosage: UNK UNK, QD
  18. VALPROIC ACID [Concomitant]
     Active Substance: VALPROIC ACID
     Dosage: 400 MILLIGRAM, TID
  19. VITAMIN D [Concomitant]
     Active Substance: VITAMIN D NOS
     Dosage: UNK UNK, QD
  20. MIDAZOLAM [Concomitant]
     Active Substance: MIDAZOLAM
  21. KETAMINE [Concomitant]
     Active Substance: KETAMINE
  22. METHYLPREDNISOLONE [Concomitant]
     Active Substance: METHYLPREDNISOLONE
     Dosage: 1 GRAM, QD
  23. LORAZEPAM [Concomitant]
     Active Substance: LORAZEPAM
  24. ALBUTEROL [Concomitant]
     Active Substance: ALBUTEROL

REACTIONS (13)
  - Seizure [Unknown]
  - Diabetic ketoacidosis [Unknown]
  - Stiff person syndrome [Unknown]
  - Frequent bowel movements [Unknown]
  - Progressive multifocal leukoencephalopathy [Unknown]
  - Renal pain [Not Recovered/Not Resolved]
  - Bowel movement irregularity [Recovered/Resolved]
  - Mental status changes [Unknown]
  - Adnexa uteri cyst [Unknown]
  - Abdominal distension [Recovered/Resolved]
  - Constipation [Recovered/Resolved]
  - Arthralgia [Not Recovered/Not Resolved]
  - Back pain [Recovered/Resolved]
